FAERS Safety Report 16778250 (Version 1)
Quarter: 2019Q3

REPORT INFORMATION
  Report Type: Report from Study
  Country: None (occurrence: US)
  Receive Date: 20190905
  Receipt Date: 20190905
  Transmission Date: 20191005
  Serious: Yes (Hospitalization)
  Sender: FDA-Public Use
  Company Number: US-ABBVIE-19K-163-2765360-00

PATIENT
  Sex: Female
  Weight: 81.72 kg

DRUGS (2)
  1. HUMIRA [Suspect]
     Active Substance: ADALIMUMAB
     Indication: PSORIATIC ARTHROPATHY
     Dosage: CITRATE FREE
     Route: 058
  2. HUMIRA [Suspect]
     Active Substance: ADALIMUMAB
     Indication: PSORIASIS

REACTIONS (6)
  - Myocardial infarction [Not Recovered/Not Resolved]
  - Ventricular extrasystoles [Unknown]
  - Pericarditis [Unknown]
  - Stress [Unknown]
  - Blood viscosity increased [Unknown]
  - Extrasystoles [Unknown]

NARRATIVE: CASE EVENT DATE: 2019
